FAERS Safety Report 10196669 (Version 1)
Quarter: 2014Q2

REPORT INFORMATION
  Report Type: Spontaneous
  Country: DE (occurrence: DE)
  Receive Date: 20140527
  Receipt Date: 20140527
  Transmission Date: 20141212
  Serious: Yes (Other)
  Sender: FDA-Public Use
  Company Number: DE-PFIZER INC-2014141849

PATIENT
  Age: 73 Year
  Sex: Male

DRUGS (2)
  1. TAFIL [Suspect]
     Dosage: UNK
  2. ARIXTRA [Concomitant]
     Dosage: UNK

REACTIONS (1)
  - White blood cell count decreased [Unknown]
